FAERS Safety Report 6135606-5 (Version None)
Quarter: 2009Q1

REPORT INFORMATION
  Report Type: 
  Country: None (occurrence: None)
  Receive Date: 20090327
  Receipt Date: 20060605
  Transmission Date: 20090719
  Serious: Yes (Death, Other)
  Sender: FDA-Public Use
  Company Number: FR-PFIZER INC-2006073746

PATIENT

DRUGS (4)
  1. IRINOTECAN HCL [Suspect]
     Indication: ADENOCARCINOMA
     Route: 065
  2. OXALIPLATIN [Suspect]
     Indication: ADENOCARCINOMA
  3. LEUCOVORIN CALCIUM [Concomitant]
     Indication: ADENOCARCINOMA
     Route: 065
  4. FLUOROURACIL [Concomitant]
     Indication: ADENOCARCINOMA

REACTIONS (2)
  - ACUTE PROMYELOCYTIC LEUKAEMIA [None]
  - NEOPLASM MALIGNANT [None]
